FAERS Safety Report 9755497 (Version 2)
Quarter: 2013Q4

REPORT INFORMATION
  Report Type: Spontaneous
  Country: BR (occurrence: BR)
  Receive Date: 20131213
  Receipt Date: 20131226
  Transmission Date: 20140711
  Serious: Yes (Other)
  Sender: FDA-Public Use
  Company Number: BR-ABBVIE-13P-020-1179450-00

PATIENT
  Age: 53 Year
  Sex: Female
  Weight: 70 kg

DRUGS (3)
  1. KLARICID UD [Suspect]
     Indication: MASS
     Route: 048
     Dates: start: 20131101
  2. PURAN T4 [Concomitant]
     Indication: HYPOTHYROIDISM
     Route: 048
     Dates: start: 1993
  3. DAFLON [Concomitant]
     Indication: PHLEBECTOMY
     Route: 048
     Dates: start: 201311

REACTIONS (5)
  - Vascular graft [Recovered/Resolved]
  - Headache [Recovered/Resolved]
  - Diarrhoea [Recovered/Resolved]
  - Dysgeusia [Not Recovered/Not Resolved]
  - Malaise [Recovered/Resolved]
